FAERS Safety Report 8240361 (Version 3)
Quarter: 2012Q4

REPORT INFORMATION
  Report Type: 
  Country: GB (occurrence: GB)
  Receive Date: 20111110
  Receipt Date: 20121001
  Transmission Date: 20130627
  Serious: Yes (Death, Hospitalization)
  Sender: FDA-Public Use
  Company Number: GB-RANBAXY-2011R1-50092

PATIENT
  Age: 47 Year
  Sex: Male

DRUGS (3)
  1. NAPROXEN [Suspect]
     Indication: GOUT
     Dosage: 500 mg, bid
     Route: 048
     Dates: start: 20111005, end: 20111015
  2. CLENIL MODULITE [Concomitant]
     Indication: PRODUCT USED FOR UNKNOWN INDICATION
     Dosage: UNK,UNK
     Route: 065
  3. VENTOLIN [Concomitant]
     Indication: PRODUCT USED FOR UNKNOWN INDICATION
     Dosage: UNK,UNK
     Route: 065

REACTIONS (2)
  - Gastrointestinal haemorrhage [Recovering/Resolving]
  - Haemoglobin decreased [Unknown]
